FAERS Safety Report 5691790-9 (Version None)
Quarter: 2008Q2

REPORT INFORMATION
  Report Type: 
  Country: None (occurrence: None)
  Receive Date: 20080402
  Receipt Date: 20080321
  Transmission Date: 20081010
  Serious: Yes (Hospitalization, Other)
  Sender: FDA-Public Use
  Company Number: PHEH2008US02862

PATIENT
  Age: 72 Year
  Sex: Female

DRUGS (4)
  1. DIOVAN HCT [Suspect]
     Indication: HYPERTENSION
     Dosage: 320VAL/25HCT, UNK
     Dates: start: 20060101, end: 20080101
  2. CARDIZEM [Concomitant]
  3. MOTRIN [Concomitant]
  4. ASPIRIN [Concomitant]
     Dosage: 81 MG, QD

REACTIONS (5)
  - BLOOD PRESSURE INCREASED [None]
  - DRUG INEFFECTIVE [None]
  - EYE HAEMORRHAGE [None]
  - EYE SWELLING [None]
  - VISION BLURRED [None]
